FAERS Safety Report 18278272 (Version 1)
Quarter: 2020Q3

REPORT INFORMATION
  Report Type: Spontaneous
  Country: US (occurrence: US)
  Receive Date: 20200917
  Receipt Date: 20200917
  Transmission Date: 20201103
  Serious: Yes (Other)
  Sender: FDA-Public Use
  Company Number: US-JNJFOC-A-NJ2018-176021

PATIENT
  Age: 54 Year
  Sex: Female
  Weight: 58.05 kg

DRUGS (11)
  1. PREDNISONE. [Concomitant]
     Active Substance: PREDNISONE
     Dosage: 5 MG, QD
  2. OPSUMIT [Suspect]
     Active Substance: MACITENTAN
     Indication: PULMONARY ARTERIAL HYPERTENSION
     Dosage: 10 MG, QD
     Route: 048
     Dates: start: 20180705
  3. PERCOCET [Concomitant]
     Active Substance: ACETAMINOPHEN\OXYCODONE HYDROCHLORIDE
     Dosage: 10/325MG TWICE A DAY PRN
  4. LASIX [Concomitant]
     Active Substance: FUROSEMIDE
     Dosage: UNK
  5. PAXIL [Concomitant]
     Active Substance: PAROXETINE HYDROCHLORIDE
     Dosage: 40 MG, QD
  6. SULFASALAZINE. [Suspect]
     Active Substance: SULFASALAZINE
     Indication: PRODUCT USED FOR UNKNOWN INDICATION
     Route: 065
  7. ORENITRAM [Suspect]
     Active Substance: TREPROSTINIL
     Indication: PRODUCT USED FOR UNKNOWN INDICATION
     Dosage: UNK
     Route: 065
  8. ARAVA [Concomitant]
     Active Substance: LEFLUNOMIDE
     Dosage: UNK
  9. PROTONIX [Concomitant]
     Active Substance: PANTOPRAZOLE SODIUM
     Dosage: 40 MG, QD
  10. MORPHINE [Concomitant]
     Active Substance: MORPHINE
     Dosage: 100 MG, BID
  11. POTASSIUM [Concomitant]
     Active Substance: POTASSIUM

REACTIONS (26)
  - Ureteric stenosis [Unknown]
  - Oedema [Unknown]
  - Blood pressure increased [Unknown]
  - Urinary retention [Unknown]
  - Rheumatoid arthritis [Unknown]
  - Fatigue [Unknown]
  - Anaemia [Unknown]
  - Hiatus hernia [Unknown]
  - Pain [Unknown]
  - Nausea [Unknown]
  - Oedema peripheral [Unknown]
  - Cough [Unknown]
  - Illness [Unknown]
  - Rhinorrhoea [Unknown]
  - Dyspnoea at rest [Unknown]
  - Tooth infection [Unknown]
  - Swelling [Unknown]
  - Blood iron decreased [Unknown]
  - Dyspnoea [Unknown]
  - Anxiety [Unknown]
  - Heart rate irregular [Unknown]
  - Weight decreased [Unknown]
  - Swelling face [Unknown]
  - Oxygen saturation [Unknown]
  - Peptic ulcer [Unknown]
  - Back pain [Unknown]

NARRATIVE: CASE EVENT DATE: 201807
